FAERS Safety Report 10228692 (Version 1)
Quarter: 2014Q2

REPORT INFORMATION
  Report Type: Spontaneous
  Country: US (occurrence: US)
  Receive Date: 20140610
  Receipt Date: 20140610
  Transmission Date: 20141212
  Serious: Yes (Hospitalization)
  Sender: FDA-Public Use
  Company Number: US-ASTRAZENECA-2014SE38634

PATIENT
  Age: 46 Year
  Sex: Female
  Weight: 80.3 kg

DRUGS (9)
  1. NEXIUM [Suspect]
     Indication: GASTROOESOPHAGEAL REFLUX DISEASE
     Route: 048
     Dates: start: 2012
  2. PRILOSEC [Suspect]
     Indication: GASTROOESOPHAGEAL REFLUX DISEASE
     Route: 048
     Dates: start: 2011, end: 2012
  3. SYNTHROID [Concomitant]
     Indication: THYROID DISORDER
     Dosage: UNK DAILY
     Route: 048
     Dates: start: 1994
  4. CALCIUM [Concomitant]
     Indication: MINERAL SUPPLEMENTATION
     Route: 048
     Dates: start: 2013
  5. VITAMIN D [Concomitant]
     Indication: VITAMIN SUPPLEMENTATION
     Route: 048
     Dates: start: 2013
  6. B12 SHOTS MONTHLY [Concomitant]
     Indication: VITAMIN B12
     Dosage: MONTH
  7. BARIATRIC VITAMIN [Concomitant]
  8. EFFEXOR [Concomitant]
     Indication: DEPRESSION
     Route: 048
     Dates: start: 2011
  9. JANUVAMET [Concomitant]
     Indication: BLOOD GLUCOSE ABNORMAL
     Dosage: DAILY
     Route: 048
     Dates: start: 2013

REACTIONS (3)
  - Procedural hypotension [Unknown]
  - Dehydration [Unknown]
  - Drug ineffective [Unknown]
